FAERS Safety Report 4566640-4 (Version None)
Quarter: 2005Q1

REPORT INFORMATION
  Report Type: 
  Country: None (occurrence: None)
  Receive Date: 20050126
  Receipt Date: 20050111
  Transmission Date: 20050727
  Serious: Yes (Disabling)
  Sender: FDA-Public Use
  Company Number: A03200500115

PATIENT
  Sex: Female

DRUGS (4)
  1. PLAQUENIL [Suspect]
     Indication: SYSTEMIC LUPUS ERYTHEMATOSUS
     Dosage: 400 MG QD - ORAL
     Route: 048
     Dates: start: 19940101, end: 20010101
  2. DIURETICS [Concomitant]
  3. AMLODIPINE BESYLATE [Concomitant]
  4. CELECOXIB [Concomitant]

REACTIONS (2)
  - BLINDNESS [None]
  - EYE DISORDER [None]
